FAERS Safety Report 23768854 (Version 4)
Quarter: 2024Q2

REPORT INFORMATION
  Report Type: Spontaneous
  Country: US (occurrence: US)
  Receive Date: 20240422
  Receipt Date: 20240604
  Transmission Date: 20240716
  Serious: Yes (Hospitalization)
  Sender: FDA-Public Use
  Company Number: US-BIOGEN-2024BI01260881

PATIENT
  Age: 49 Year
  Sex: Male

DRUGS (2)
  1. VUMERITY [Suspect]
     Active Substance: DIROXIMEL FUMARATE
     Indication: Multiple sclerosis
     Route: 050
     Dates: start: 20240411
  2. VUMERITY [Suspect]
     Active Substance: DIROXIMEL FUMARATE
     Route: 050
     Dates: start: 20240418

REACTIONS (7)
  - Testicular pain [Unknown]
  - Neurogenic bladder [Unknown]
  - Musculoskeletal disorder [Unknown]
  - Nephrolithiasis [Not Recovered/Not Resolved]
  - Anaemia [Not Recovered/Not Resolved]
  - Testicular abscess [Not Recovered/Not Resolved]
  - Flushing [Recovered/Resolved]

NARRATIVE: CASE EVENT DATE: 20240401
